FAERS Safety Report 23749732 (Version 1)
Quarter: 2024Q2

REPORT INFORMATION
  Report Type: Spontaneous
  Country: IT (occurrence: IT)
  Receive Date: 20240416
  Receipt Date: 20240416
  Transmission Date: 20240716
  Serious: Yes (Hospitalization, Other)
  Sender: FDA-Public Use
  Company Number: IT-MLMSERVICE-20181114-1469353-1

PATIENT
  Age: 52 Year
  Sex: Male

DRUGS (6)
  1. DOCETAXEL [Suspect]
     Active Substance: DOCETAXEL\DOCETAXEL ANHYDROUS
     Indication: Metastases to lymph nodes
     Dosage: UNK UNK,QCY
     Route: 042
     Dates: start: 201506, end: 201506
  2. DOCETAXEL [Suspect]
     Active Substance: DOCETAXEL\DOCETAXEL ANHYDROUS
     Indication: Neoplasm malignant
     Dosage: UNK UNK,QCY
     Route: 042
     Dates: start: 201607, end: 201607
  3. DOCETAXEL [Suspect]
     Active Substance: DOCETAXEL\DOCETAXEL ANHYDROUS
     Indication: Penile squamous cell carcinoma
     Dosage: UNK UNK,QCY
     Route: 042
     Dates: start: 201509, end: 201607
  4. DOCETAXEL [Suspect]
     Active Substance: DOCETAXEL\DOCETAXEL ANHYDROUS
     Dosage: 2 ONCE-WEEKLY CYCLES
     Route: 065
     Dates: start: 201611
  5. CISPLATIN [Suspect]
     Active Substance: CISPLATIN
     Indication: Chemotherapy
     Dosage: UNK UNK, CYCLICAL
     Route: 065
     Dates: start: 201509
  6. CAPECITABINE [Concomitant]
     Active Substance: CAPECITABINE
     Indication: Penile squamous cell carcinoma
     Dosage: UNK
     Route: 065

REACTIONS (8)
  - Haemolytic anaemia [Recovering/Resolving]
  - Acute kidney injury [Recovering/Resolving]
  - Atypical haemolytic uraemic syndrome [Recovering/Resolving]
  - Thrombocytopenia [Recovering/Resolving]
  - Anuria [Not Recovered/Not Resolved]
  - Condition aggravated [Recovering/Resolving]
  - Neurotoxicity [Unknown]
  - Off label use [Unknown]

NARRATIVE: CASE EVENT DATE: 20160701
